FAERS Safety Report 8460045-1 (Version None)
Quarter: 2012Q2

REPORT INFORMATION
  Report Type: 
  Country: None (occurrence: None)
  Receive Date: 20120622
  Receipt Date: 20120622
  Transmission Date: 20120825
  Serious: Yes (Death, Hospitalization, Other)
  Sender: FDA-Public Use
  Company Number: US-PFIZER INC-2010096808

PATIENT
  Age: 71 Year
  Sex: Female

DRUGS (5)
  1. LISINOPRIL [Concomitant]
  2. FAMOTIDINE [Concomitant]
  3. VERAPAMIL HCL [Interacting]
     Indication: HYPERTENSION
     Dosage: 80 MG, 3X/DAY
  4. ATORVASTATIN CALCIUM [Suspect]
     Dosage: 20 MG, 1X/DAY
  5. INSULIN [Concomitant]

REACTIONS (4)
  - MULTI-ORGAN FAILURE [None]
  - RHABDOMYOLYSIS [None]
  - DRUG INTERACTION [None]
  - DISSEMINATED INTRAVASCULAR COAGULATION [None]
